FAERS Safety Report 23055564 (Version 1)
Quarter: 2023Q4

REPORT INFORMATION
  Report Type: Spontaneous
  Country: FR (occurrence: FR)
  Receive Date: 20231011
  Receipt Date: 20231011
  Transmission Date: 20240109
  Serious: Yes (Other)
  Sender: FDA-Public Use
  Company Number: None

PATIENT
  Age: 71 Year
  Sex: Female
  Weight: 110 kg

DRUGS (7)
  1. PROPOFOL [Suspect]
     Active Substance: PROPOFOL
     Indication: General anaesthesia
     Dosage: ROA-20045000
     Route: 042
     Dates: start: 20230828, end: 20230828
  2. ROCURONIUM BROMIDE [Suspect]
     Active Substance: ROCURONIUM BROMIDE
     Indication: General anaesthesia
     Dosage: ROA-20045000
     Route: 042
     Dates: start: 20230828, end: 20230828
  3. DEXAMETHASONE [Suspect]
     Active Substance: DEXAMETHASONE
     Indication: General anaesthesia
     Dosage: ROA-20045000
     Route: 042
     Dates: start: 20230828, end: 20230828
  4. SUFENTANIL [Suspect]
     Active Substance: SUFENTANIL
     Indication: General anaesthesia
     Dosage: ROA-20045000
     Route: 042
     Dates: start: 20230828, end: 20230828
  5. EPHEDRINE [Suspect]
     Active Substance: EPHEDRINE
     Indication: General anaesthesia
     Dosage: ROA-20045000
     Route: 042
     Dates: start: 20230828, end: 20230828
  6. DROPERIDOL [Suspect]
     Active Substance: DROPERIDOL
     Indication: General anaesthesia
     Dosage: ROA-20045000
     Route: 042
     Dates: start: 20230828, end: 20230828
  7. NOREPINEPHRINE [Suspect]
     Active Substance: NOREPINEPHRINE
     Indication: General anaesthesia
     Dosage: ROA-20045000
     Route: 042
     Dates: start: 20230828, end: 20230828

REACTIONS (1)
  - Anaphylactic reaction [Recovered/Resolved]

NARRATIVE: CASE EVENT DATE: 20230828
